FAERS Safety Report 9086349 (Version 1)
Quarter: 2013Q1

REPORT INFORMATION
  Report Type: Spontaneous
  Country: BR (occurrence: BR)
  Receive Date: 20130131
  Receipt Date: 20130131
  Transmission Date: 20140127
  Serious: Yes (Other)
  Sender: FDA-Public Use
  Company Number: BR-PFIZER INC-2013036347

PATIENT
  Age: 76 Year
  Sex: Male

DRUGS (10)
  1. LIPITOR [Suspect]
     Dosage: 20 MG, DAILY
     Route: 048
  2. BENERVA [Concomitant]
     Dosage: UNK
  3. DIAMICRON MR [Concomitant]
     Dosage: UNK
  4. GLIFAGE [Concomitant]
     Dosage: UNK
  5. LOSARTAN POTASSIUM [Concomitant]
     Dosage: UNK
  6. MODURETIC [Concomitant]
     Dosage: UNK
  7. OMEPRAZOL [Concomitant]
     Dosage: UNK
  8. FLAXIN [Concomitant]
     Dosage: 5 MG, UNK
     Dates: start: 2012
  9. LIPIDIL [Concomitant]
     Dosage: UNK
     Dates: start: 2012
  10. TRAYENTA [Concomitant]
     Dosage: UNK
     Dates: start: 2012

REACTIONS (1)
  - Polyneuropathy [Not Recovered/Not Resolved]
